FAERS Safety Report 8414891-0 (Version None)
Quarter: 2012Q2

REPORT INFORMATION
  Report Type: 
  Country: None (occurrence: None)
  Receive Date: 20120601
  Receipt Date: 20120601
  Transmission Date: 20120825
  Serious: Yes (Hospitalization)
  Sender: FDA-Public Use
  Company Number: None

PATIENT
  Sex: Female
  Weight: 85.2 kg

DRUGS (2)
  1. CISPLATIN [Suspect]
     Dosage: 140 MG
     Dates: end: 20120517
  2. TAXOTERE [Suspect]
     Dosage: 140 MG
     Dates: end: 20120517

REACTIONS (2)
  - NEUTROPENIA [None]
  - DEEP VEIN THROMBOSIS [None]
